FAERS Safety Report 18298348 (Version 9)
Quarter: 2024Q1

REPORT INFORMATION
  Report Type: Spontaneous
  Country: US (occurrence: US)
  Receive Date: 20200922
  Receipt Date: 20240112
  Transmission Date: 20240410
  Serious: No
  Sender: FDA-Public Use
  Company Number: US-PFIZER INC-2020362905

PATIENT
  Age: 73 Year
  Sex: Female

DRUGS (6)
  1. IBRANCE [Suspect]
     Active Substance: PALBOCICLIB
     Indication: Breast cancer female
     Dosage: 75 MG, CYCLIC (ONCE DAILY FOR 21 DAYS, THEN OFF FOR 7 DAYS)
     Route: 048
  2. IBRANCE [Suspect]
     Active Substance: PALBOCICLIB
     Dosage: 75 MG, CYCLIC (7 DAYS, OFF 2 OR 3 TO GET RELIEF, 6 TIMES, OFF 2 DAYS, TAKE THE REST, OFF 2 OR 3 DAY)
     Route: 048
  3. IBRANCE [Suspect]
     Active Substance: PALBOCICLIB
     Dosage: 75 MG, DAILY
  4. IBRANCE [Suspect]
     Active Substance: PALBOCICLIB
     Dosage: 75 MG, CYCLIC (ONCE DAILY, 2 WEEKS ON AND 2 WEEKS OFF)
     Route: 048
  5. AMLODIPINE BESYLATE [Concomitant]
     Active Substance: AMLODIPINE BESYLATE
     Indication: Blood pressure abnormal
     Dosage: UNK, (WHOLE TABLET)
  6. AMLODIPINE BESYLATE [Concomitant]
     Active Substance: AMLODIPINE BESYLATE
     Dosage: UNK, (HALF TABLET)

REACTIONS (9)
  - Rash [Unknown]
  - Dyspnoea [Unknown]
  - Weight increased [Unknown]
  - Vulvovaginal pruritus [Unknown]
  - Nocturia [Unknown]
  - Hypoacusis [Unknown]
  - Pruritus [Unknown]
  - Off label use [Unknown]
  - Intentional dose omission [Unknown]
